FAERS Safety Report 23591155 (Version 2)
Quarter: 2024Q1

REPORT INFORMATION
  Report Type: Spontaneous
  Country: JP (occurrence: None)
  Receive Date: 20240304
  Receipt Date: 20240328
  Transmission Date: 20240410
  Serious: Yes (Death, Other)
  Sender: FDA-Public Use
  Company Number: 2024A051638

PATIENT
  Age: 46 Year
  Sex: Female

DRUGS (3)
  1. IMFINZI [Suspect]
     Active Substance: DURVALUMAB
     Indication: Bile duct cancer
     Dosage: DOSE UNKNOWN
     Route: 041
     Dates: start: 202310, end: 202310
  2. GEMCITABINE HYDROCHLORIDE [Concomitant]
     Active Substance: GEMCITABINE HYDROCHLORIDE
     Indication: Bile duct cancer
     Dosage: DOSE UNKNOWN
     Route: 065
     Dates: start: 202310, end: 202310
  3. CISPLATIN [Concomitant]
     Active Substance: CISPLATIN
     Indication: Bile duct cancer
     Dosage: DOSE UNKNOWN
     Route: 065
     Dates: start: 202310, end: 202310

REACTIONS (4)
  - Death [Fatal]
  - Alanine aminotransferase increased [Unknown]
  - Cholangitis sclerosing [Unknown]
  - Immune-mediated cholangitis [Unknown]

NARRATIVE: CASE EVENT DATE: 20231101
